FAERS Safety Report 6911197-3 (Version None)
Quarter: 2010Q3

REPORT INFORMATION
  Report Type: 
  Country: None (occurrence: None)
  Receive Date: 20100806
  Receipt Date: 20100723
  Transmission Date: 20110219
  Serious: Yes (Hospitalization)
  Sender: FDA-Public Use
  Company Number: US-ROCHE-717255

PATIENT
  Sex: Male
  Weight: 129.3 kg

DRUGS (13)
  1. BEVACIZUMAB [Suspect]
     Indication: GASTRIC CANCER
     Dosage: DOSE: 13 MG/KG
     Route: 042
     Dates: start: 20100302, end: 20100622
  2. CAPECITABINE [Suspect]
     Indication: GASTRIC CANCER
     Dosage: DOSE: 690 MG/M2, FREQUENCY: DAYS 1-14
     Route: 048
     Dates: start: 20100302, end: 20100705
  3. OXALIPLATIN [Suspect]
     Indication: GASTRIC CANCER
     Dosage: DOSE: 104 MG/M2
     Route: 042
     Dates: start: 20100302, end: 20100622
  4. ZOFRAN [Concomitant]
     Route: 048
     Dates: start: 20100717
  5. PRILOSEC [Concomitant]
     Dosage: FREQUENCY: 2 CAPSULES BEFORE MEALS
     Route: 048
     Dates: start: 20100717
  6. CARAFATE [Concomitant]
     Dosage: STRENGTH: 100 MG/ML, FREQUENCY: 10 ML 4 TIMES A DAY BEFORE MEALS AND AT BEDTIME
     Route: 048
     Dates: start: 20100717
  7. LOVENOX [Concomitant]
     Dosage: STRENGTH: 150 MG/ML, INJECT 1 ML BENEATH THE SKIN ONCE A DAY
     Route: 058
     Dates: start: 20100717
  8. TOPAMAX [Concomitant]
     Route: 048
     Dates: start: 20100717
  9. ATIVAN [Concomitant]
     Dosage: FREQUENCY: EVERY 6 HOURS AS NEEDED
     Route: 048
     Dates: start: 20100717
  10. ERGOCALCIFEROL [Concomitant]
     Dosage: DOSE: 50000 UNITS
     Route: 048
     Dates: start: 20100717
  11. IMITREX [Concomitant]
     Dosage: FREQUENCY: 1 TABLET AT THE ONSET OF HEADACHE
     Route: 048
     Dates: start: 20100717
  12. FISH OIL [Concomitant]
     Dosage: DOSE: 1200-144-216 M, 1 CAPSULE
     Route: 048
     Dates: start: 20100717
  13. ACETAMINOPHEN [Concomitant]
     Dosage: FREQUENCY ALSO REPORTED AS 8 HOURS
     Route: 048
     Dates: start: 20100717

REACTIONS (3)
  - ABDOMINAL PAIN UPPER [None]
  - BILE DUCT STENOSIS [None]
  - NEPHROTIC SYNDROME [None]
